FAERS Safety Report 7900641-0 (Version None)
Quarter: 2011Q4

REPORT INFORMATION
  Report Type: 
  Country: None (occurrence: None)
  Receive Date: 20111108
  Receipt Date: 20111102
  Transmission Date: 20120403
  Serious: No
  Sender: FDA-Public Use
  Company Number: US-PFIZER INC-2011268901

PATIENT
  Sex: Female
  Weight: 92.063 kg

DRUGS (7)
  1. MEDROL [Suspect]
     Indication: VASCULITIS
  2. MEDROL [Suspect]
     Indication: RHEUMATOID ARTHRITIS
  3. MEDROL [Suspect]
     Indication: LYMPHATIC DISORDER
  4. MEDROL [Suspect]
     Indication: AUTOIMMUNE DISORDER
     Dosage: 4 MG, DAILY
     Route: 048
     Dates: start: 20070101
  5. MEDROL [Suspect]
     Indication: CONTRACEPTION
  6. MEDROL [Suspect]
     Indication: INFLAMMATION
  7. MEDROL [Suspect]
     Indication: MIXED CONNECTIVE TISSUE DISEASE

REACTIONS (3)
  - WITHDRAWAL SYNDROME [None]
  - RENAL DISORDER [None]
  - CHROMATURIA [None]
